FAERS Safety Report 6656055-7 (Version None)
Quarter: 2010Q1

REPORT INFORMATION
  Report Type: 
  Country: None (occurrence: None)
  Receive Date: 20100329
  Receipt Date: 20100324
  Transmission Date: 20100710
  Serious: Yes (Other)
  Sender: FDA-Public Use
  Company Number: A0842417A

PATIENT
  Sex: Female

DRUGS (2)
  1. LEUKERAN [Suspect]
     Indication: DRUG DISPENSING ERROR
     Dosage: 2MG WEEKLY
     Route: 048
     Dates: start: 20080208, end: 20080602
  2. LEUCOVORIN CALCIUM [Suspect]
     Indication: RHEUMATOID ARTHRITIS
     Route: 065

REACTIONS (5)
  - DRUG DISPENSING ERROR [None]
  - INFLUENZA LIKE ILLNESS [None]
  - NEUTROPENIA [None]
  - PNEUMONIA [None]
  - WHITE BLOOD CELL COUNT DECREASED [None]
